FAERS Safety Report 10174324 (Version 2)
Quarter: 2014Q2

REPORT INFORMATION
  Report Type: Spontaneous
  Country: US (occurrence: US)
  Receive Date: 20140515
  Receipt Date: 20140515
  Transmission Date: 20141212
  Serious: No
  Sender: FDA-Public Use
  Company Number: US-ASTRAZENECA-2013SE92494

PATIENT
  Age: 46 Year
  Sex: Female
  Weight: 84 kg

DRUGS (2)
  1. ZOLADEX [Suspect]
     Indication: BREAST CANCER METASTATIC
     Route: 058
  2. ZOLADEX [Suspect]
     Indication: BREAST CANCER METASTATIC
     Route: 058
     Dates: start: 20131217, end: 20131217

REACTIONS (2)
  - Device expulsion [Recovered/Resolved]
  - Intentional product misuse [Unknown]
